FAERS Safety Report 13608234 (Version 2)
Quarter: 2018Q4

REPORT INFORMATION
  Report Type: Spontaneous
  Country: US (occurrence: US)
  Receive Date: 20170602
  Receipt Date: 20181105
  Transmission Date: 20190204
  Serious: No
  Sender: FDA-Public Use
  Company Number: US-PFIZER INC-2016494581

PATIENT
  Age: 44 Year
  Sex: Female
  Weight: 61 kg

DRUGS (7)
  1. LYRICA [Suspect]
     Active Substance: PREGABALIN
     Indication: BACK PAIN
  2. LYRICA [Suspect]
     Active Substance: PREGABALIN
     Indication: NEURITIS
  3. LYRICA [Suspect]
     Active Substance: PREGABALIN
     Indication: NEURALGIA
     Dosage: 75 MG, 3X/DAY(1 CAPSULE ORAL THREE TIMES A DAY)
     Route: 048
     Dates: start: 201504
  4. LYRICA [Suspect]
     Active Substance: PREGABALIN
     Indication: POLYNEUROPATHY
  5. LYRICA [Suspect]
     Active Substance: PREGABALIN
     Indication: ARTHRALGIA
  6. LYRICA [Suspect]
     Active Substance: PREGABALIN
     Indication: NECK PAIN
  7. LYRICA [Suspect]
     Active Substance: PREGABALIN
     Indication: NEUROPATHY PERIPHERAL

REACTIONS (1)
  - Drug effect incomplete [Unknown]
